FAERS Safety Report 11431587 (Version 1)
Quarter: 2015Q3

REPORT INFORMATION
  Report Type: Report from Study
  Country: FR (occurrence: FR)
  Receive Date: 20150828
  Receipt Date: 20150828
  Transmission Date: 20151125
  Serious: Yes (Hospitalization)
  Sender: FDA-Public Use
  Company Number: FR-GLAXOSMITHKLINE-FR2015GSK122456

PATIENT
  Age: 55 Year
  Sex: Male

DRUGS (7)
  1. PLAVIX [Concomitant]
     Active Substance: CLOPIDOGREL BISULFATE
  2. TAHOR [Concomitant]
     Active Substance: ATORVASTATIN CALCIUM
  3. CORVASAL [Concomitant]
     Active Substance: LINSIDOMINE
  4. TENORMIN [Concomitant]
     Active Substance: ATENOLOL
  5. OMEGA-3-ACID ETHYL ESTERS. [Suspect]
     Active Substance: OMEGA-3-ACID ETHYL ESTERS
     Indication: ISCHAEMIC HEART DISEASE PROPHYLAXIS
     Dosage: UNK
     Dates: start: 20071010
  6. KARDEGIC [Concomitant]
     Active Substance: ASPIRIN LYSINE
  7. TRIATEC [Concomitant]
     Active Substance: RAMIPRIL

REACTIONS (1)
  - Arteriogram coronary [Recovered/Resolved]

NARRATIVE: CASE EVENT DATE: 20090209
